FAERS Safety Report 10484510 (Version 1)
Quarter: 2014Q3

REPORT INFORMATION
  Report Type: Spontaneous
  Country: US (occurrence: US)
  Receive Date: 20140930
  Receipt Date: 20140930
  Transmission Date: 20150326
  Serious: Yes (Death, Hospitalization)
  Sender: FDA-Public Use
  Company Number: US-TARO PHARMACEUTICALS U.S.A., INC-2014SUN02204

PATIENT
  Age: 78 Year
  Sex: Male

DRUGS (10)
  1. WARFARIN [Interacting]
     Active Substance: WARFARIN
     Dosage: 7.5MG ON MONDAY AND 5MG ALL DAYS OF WEEK EXCEPT MONDAY
     Route: 048
  2. LISINOPRIL. [Concomitant]
     Active Substance: LISINOPRIL
     Dosage: 40 MG, QD
  3. WARFARIN [Suspect]
     Active Substance: WARFARIN
     Indication: DEEP VEIN THROMBOSIS
     Dosage: 10 MG ON MONDAY AND 7.5MG ALL DAYS OF WEEK EXCEPT MONDAY
     Route: 048
  4. VISMODEGIB [Interacting]
     Active Substance: VISMODEGIB
     Indication: BASAL CELL CARCINOMA
     Dosage: 150 MG, OD
     Route: 048
     Dates: start: 201204
  5. HYDROCHLOROTHIAZIDE. [Concomitant]
     Active Substance: HYDROCHLOROTHIAZIDE
     Dosage: 25 MG, QD
  6. FLUOXETINE [Concomitant]
     Active Substance: FLUOXETINE\FLUOXETINE HYDROCHLORIDE
     Dosage: 20 MG, QD
  7. WARFARIN [Interacting]
     Active Substance: WARFARIN
     Dosage: 2.5MG ON MONDAY AND 5MG ALL DAYS OF WEEK EXCEPT MONDAY
     Route: 048
  8. PRAVASTATIN [Concomitant]
     Active Substance: PRAVASTATIN\PRAVASTATIN SODIUM
     Dosage: 40 MG, QD
  9. FERROUS SULFATE [Concomitant]
     Active Substance: FERROUS SULFATE\FERROUS SULFATE, DRIED
     Dosage: 325 MG, QD
  10. PHENYTOIN SODIUM EXTENDED RELEASE [Concomitant]
     Dosage: 400 MG, QD

REACTIONS (7)
  - Death [Fatal]
  - Mental status changes [Unknown]
  - Loss of consciousness [Unknown]
  - Haemoglobin decreased [Unknown]
  - Haematocrit decreased [Unknown]
  - International normalised ratio increased [Unknown]
  - Drug interaction [Unknown]
